FAERS Safety Report 8673077 (Version 2)
Quarter: 2012Q4

REPORT INFORMATION
  Report Type: 
  Country: PL (occurrence: PL)
  Receive Date: 20120719
  Receipt Date: 20121112
  Transmission Date: 20130627
  Serious: Yes (Hospitalization)
  Sender: FDA-Public Use
  Company Number: PL-ROCHE-1086751

PATIENT
  Age: 58 Year
  Sex: Female
  Weight: 72 kg

DRUGS (8)
  1. HERCEPTIN [Suspect]
     Indication: GASTRIC CANCER
     Route: 065
     Dates: start: 20100921, end: 20111205
  2. HERCEPTIN [Suspect]
     Route: 065
  3. CISPLATIN [Concomitant]
     Indication: GASTRIC CANCER
     Route: 042
     Dates: start: 20100921, end: 20111207
  4. 5-FLUOROURACIL [Concomitant]
     Indication: GASTRIC CANCER
     Route: 042
     Dates: start: 20100921, end: 20111208
  5. ZOFRAN [Concomitant]
     Route: 042
     Dates: start: 20100921, end: 20111208
  6. LOSACOR [Concomitant]
     Indication: HYPERTENSION
     Route: 048
  7. CLINDAMYCIN PHOSPHATE [Concomitant]
     Indication: PROPHYLAXIS AGAINST GASTROINTESTINAL ULCER
     Route: 048
  8. CHLORPROTHIXENE [Concomitant]

REACTIONS (5)
  - Adjustment disorder [Unknown]
  - Suicidal ideation [Unknown]
  - Personality disorder [Recovered/Resolved]
  - Drug intolerance [Recovered/Resolved]
  - Cancer pain [Unknown]
